FAERS Safety Report 6471748-2 (Version None)
Quarter: 2009Q4

REPORT INFORMATION
  Report Type: 
  Country: None (occurrence: None)
  Receive Date: 20091203
  Receipt Date: 20090706
  Transmission Date: 20100525
  Serious: Yes (Hospitalization, Other)
  Sender: FDA-Public Use
  Company Number: US-ELI_LILLY_AND_COMPANY-US200803000894

PATIENT
  Sex: Female

DRUGS (9)
  1. FORTEO [Suspect]
     Indication: OSTEOPOROSIS
     Dosage: 20 UG, DAILY (1/D)
     Dates: start: 20071001
  2. OXYCODONE HCL [Concomitant]
  3. PHENOBARBITAL [Concomitant]
     Indication: CONVULSION
     Dosage: 120 MG, 2/D
  4. VITAMIN D [Concomitant]
     Dosage: 50000 U, 2/W
  5. CALCIUM [Concomitant]
  6. AMBIEN [Concomitant]
  7. OXYCONTIN [Concomitant]
     Dosage: 80 MG, 2/D
  8. LOVENOX [Concomitant]
     Indication: PROTEIN C DEFICIENCY
     Dosage: 120 MG, DAILY (1/D)
     Dates: start: 19990101, end: 20060101
  9. LOVENOX [Concomitant]
     Dosage: 80 MG, DAILY (1/D)
     Dates: start: 20060101

REACTIONS (29)
  - ABDOMINAL PAIN LOWER [None]
  - ANXIETY [None]
  - ARTERIAL DISORDER [None]
  - ATRIAL FIBRILLATION [None]
  - CHAPPED LIPS [None]
  - EPISTAXIS [None]
  - FALL [None]
  - HAEMATOCHEZIA [None]
  - HEADACHE [None]
  - HEPATOMEGALY [None]
  - LIP PAIN [None]
  - MALAISE [None]
  - MOUTH HAEMORRHAGE [None]
  - MUSCULOSKELETAL DISCOMFORT [None]
  - NAUSEA [None]
  - ORAL PAIN [None]
  - PAIN [None]
  - PAIN IN EXTREMITY [None]
  - PANCREATIC DISORDER [None]
  - PANCREATIC ENLARGEMENT [None]
  - PYREXIA [None]
  - RECTAL HAEMORRHAGE [None]
  - RESORPTION BONE INCREASED [None]
  - SKIN DISCOLOURATION [None]
  - SPLENOMEGALY [None]
  - THROMBOCYTOPENIA [None]
  - THROMBOSIS [None]
  - URINARY TRACT DISORDER [None]
  - VOMITING [None]
